FAERS Safety Report 14896390 (Version 2)
Quarter: 2018Q2

REPORT INFORMATION
  Report Type: Report from Study
  Country: BR (occurrence: BR)
  Receive Date: 20180515
  Receipt Date: 20180612
  Transmission Date: 20180711
  Serious: Yes (Hospitalization)
  Sender: FDA-Public Use
  Company Number: PHHY2018BR003300

PATIENT
  Age: 77 Year
  Sex: Male
  Weight: 70 kg

DRUGS (4)
  1. EXELON PATCH [Suspect]
     Active Substance: RIVASTIGMINE
     Indication: DEMENTIA ALZHEIMER^S TYPE
     Dosage: 4.6 MG, QD PATCH 5 (CM2)
     Route: 062
  2. EXELON PATCH [Suspect]
     Active Substance: RIVASTIGMINE
     Indication: AMNESIA
     Dosage: 13.3 MG, QD PATCH 15 (CM2)
     Route: 062
     Dates: start: 20180108, end: 20180419
  3. BRINTELLIX [Concomitant]
     Active Substance: VORTIOXETINE HYDROBROMIDE
     Indication: DEPRESSION
     Dosage: 1 DF, QHS
     Route: 048
  4. EXELON [Suspect]
     Active Substance: RIVASTIGMINE TARTRATE
     Indication: DEMENTIA ALZHEIMER^S TYPE
     Dosage: 1 DF (4.5MG), BID
     Route: 048
     Dates: start: 20180420, end: 20180430

REACTIONS (15)
  - Femur fracture [Not Recovered/Not Resolved]
  - Product adhesion issue [Not Recovered/Not Resolved]
  - Vomiting [Recovered/Resolved]
  - Lack of application site rotation [Unknown]
  - Hypersensitivity [Not Recovered/Not Resolved]
  - Blister [Unknown]
  - Syncope [Unknown]
  - Stress [Unknown]
  - Syncope [Recovered/Resolved]
  - Hypotension [Recovered/Resolved]
  - Fall [Not Recovered/Not Resolved]
  - Dermatitis [Unknown]
  - Skin irritation [Not Recovered/Not Resolved]
  - Rash [Unknown]
  - Hyperaemia [Not Recovered/Not Resolved]

NARRATIVE: CASE EVENT DATE: 20180420
